FAERS Safety Report 7138025-8 (Version None)
Quarter: 2010Q4

REPORT INFORMATION
  Report Type: 
  Country: None (occurrence: None)
  Receive Date: 20101104
  Receipt Date: 20100316
  Transmission Date: 20110411
  Serious: Yes (Other)
  Sender: FDA-Public Use
  Company Number: US-WYE-H14149310

PATIENT
  Age: 64 Year
  Sex: Male
  Weight: 115.77 kg

DRUGS (4)
  1. ADVIL COLD AND SINUS [Suspect]
     Indication: SINUS DISORDER
     Dosage: 2 TABLETS IN AM AND 1 TABLET IN PM AS NEEDED, ORAL
     Route: 048
     Dates: start: 20100201
  2. ALLOPURINOL [Concomitant]
  3. NORVASC [Concomitant]
  4. CAPTOPRIL [Concomitant]

REACTIONS (3)
  - CONDITION AGGRAVATED [None]
  - DYSPNOEA [None]
  - PARANASAL SINUS HYPERSECRETION [None]
